FAERS Safety Report 10682334 (Version 1)
Quarter: 2014Q4

REPORT INFORMATION
  Report Type: Spontaneous
  Country: FR (occurrence: None)
  Receive Date: 20141224
  Receipt Date: 20141224
  Transmission Date: 20150529
  Serious: Yes (Hospitalization, Other)
  Sender: FDA-Public Use
  Company Number: 2014FE03541

PATIENT
  Age: 27 Year
  Sex: Female

DRUGS (2)
  1. PROPESS [Suspect]
     Active Substance: DINOPROSTONE
     Indication: LABOUR INDUCTION
     Dosage: ONCE SINGLE
     Route: 067
     Dates: start: 201402, end: 201402
  2. OXYTOCIN. [Suspect]
     Active Substance: OXYTOCIN
     Indication: LABOUR INDUCTION
     Dosage: IV BOLUS
     Route: 042

REACTIONS (7)
  - Prolonged labour [None]
  - Drug hypersensitivity [None]
  - Drug ineffective [None]
  - Urethral perforation [None]
  - Burning sensation [None]
  - Postpartum haemorrhage [None]
  - Procedural complication [None]

NARRATIVE: CASE EVENT DATE: 201402
